FAERS Safety Report 5086916-4 (Version None)
Quarter: 2006Q3

REPORT INFORMATION
  Report Type: 
  Country: None (occurrence: None)
  Receive Date: 20060818
  Receipt Date: 20060807
  Transmission Date: 20061208
  Serious: Yes (Other)
  Sender: FDA-Public Use
  Company Number: 2006095229

PATIENT
  Age: 60 Year
  Sex: Male
  Weight: 83.9154 kg

DRUGS (4)
  1. DILANTIN [Suspect]
     Indication: GRAND MAL CONVULSION
     Dosage: 400 MG (100 MG, 4 IN 1 D), ORAL
     Route: 048
     Dates: start: 19620101
  2. ALLEGRA-D 12 HOUR [Concomitant]
  3. PHENOBARBITAL TAB [Concomitant]
  4. FLONASE [Concomitant]

REACTIONS (14)
  - ANTICONVULSANT DRUG LEVEL DECREASED [None]
  - AURA [None]
  - CONVULSION [None]
  - DRUG EFFECT DECREASED [None]
  - DRUG INEFFECTIVE [None]
  - FATIGUE [None]
  - HEAD DISCOMFORT [None]
  - HEADACHE [None]
  - HYPERHIDROSIS [None]
  - INSOMNIA [None]
  - MALAISE [None]
  - PHARMACEUTICAL PRODUCT COMPLAINT [None]
  - STRESS AT WORK [None]
  - THERAPEUTIC RESPONSE UNEXPECTED WITH DRUG SUBSTITUTION [None]
